FAERS Safety Report 5582895-1 (Version None)
Quarter: 2008Q1

REPORT INFORMATION
  Report Type: 
  Country: None (occurrence: None)
  Receive Date: 20080107
  Receipt Date: 20071113
  Transmission Date: 20080703
  Serious: Yes (Death, Other)
  Sender: FDA-Public Use
  Company Number: US-PURDUE-USA_2007_0030536

PATIENT
  Age: 36 Year
  Sex: Male

DRUGS (1)
  1. OXYCONTIN [Suspect]
     Indication: PAIN
     Dates: start: 19970804, end: 20010102

REACTIONS (4)
  - BRONCHOPNEUMONIA [None]
  - CONGESTIVE CARDIOMYOPATHY [None]
  - DRUG DEPENDENCE [None]
  - HEPATIC STEATOSIS [None]
